FAERS Safety Report 14246855 (Version 2)
Quarter: 2018Q1

REPORT INFORMATION
  Report Type: Spontaneous
  Country: US (occurrence: US)
  Receive Date: 20171204
  Receipt Date: 20180110
  Transmission Date: 20180508
  Serious: No
  Sender: FDA-Public Use
  Company Number: US-PFIZER INC-2017516854

PATIENT
  Age: 79 Year
  Sex: Female

DRUGS (1)
  1. XELJANZ XR [Suspect]
     Active Substance: TOFACITINIB CITRATE
     Dosage: 11 MG, UNK
     Dates: start: 201711

REACTIONS (6)
  - Lung disorder [Unknown]
  - Pain in extremity [Unknown]
  - Fatigue [Unknown]
  - Nasopharyngitis [Unknown]
  - Dyspnoea [Unknown]
  - Pain [Not Recovered/Not Resolved]
